FAERS Safety Report 4719833-7 (Version None)
Quarter: 2005Q3

REPORT INFORMATION
  Report Type: 
  Country: None (occurrence: None)
  Receive Date: 20050721
  Receipt Date: 20041201
  Transmission Date: 20060218
  Serious: No
  Sender: FDA-Public Use
  Company Number: US-GLAXOSMITHKLINE-A0535750A

PATIENT
  Age: 87 Year
  Sex: Female
  Weight: 87.7 kg

DRUGS (9)
  1. AVANDIA [Suspect]
     Dosage: 4MG PER DAY
     Route: 048
     Dates: start: 20040601
  2. PLAVIX [Concomitant]
     Dosage: 75MG PER DAY
  3. FOSAMAX [Concomitant]
     Dosage: 50MG PER DAY
  4. COZAAR [Concomitant]
  5. COREG [Concomitant]
     Dosage: 6.2MG TWICE PER DAY
  6. PRILOSEC [Concomitant]
     Dosage: 20MG PER DAY
  7. LASIX [Concomitant]
     Route: 048
  8. LOVASTATIN [Concomitant]
     Dosage: 20MG PER DAY
     Route: 065
  9. UNSPECIFIED MEDICATION [Concomitant]

REACTIONS (1)
  - WEIGHT INCREASED [None]
